FAERS Safety Report 24276716 (Version 2)
Quarter: 2024Q3

REPORT INFORMATION
  Report Type: Spontaneous
  Country: JP (occurrence: JP)
  Receive Date: 20240903
  Receipt Date: 20240930
  Transmission Date: 20241016
  Serious: Yes (Other)
  Sender: ROCHE
  Company Number: JP-CHUGAI-2024020927

PATIENT
  Age: 80 Year
  Sex: Female

DRUGS (8)
  1. VABYSMO [Suspect]
     Active Substance: FARICIMAB-SVOA
     Indication: Diabetic retinal oedema
     Dosage: RIGHT EYE
     Route: 050
     Dates: start: 20240323, end: 20240323
  2. VABYSMO [Suspect]
     Active Substance: FARICIMAB-SVOA
     Dosage: LEFT EYE
     Route: 050
     Dates: start: 20240507, end: 20240507
  3. AZOPT [Concomitant]
     Active Substance: BRINZOLAMIDE
  4. BETAMETHASONE [Concomitant]
     Active Substance: BETAMETHASONE
  5. DEPAS [Concomitant]
  6. REZALTASG [Concomitant]
  7. CRESTOR [Concomitant]
     Active Substance: ROSUVASTATIN CALCIUM
  8. CARBIDOPA\LEVODOPA [Concomitant]
     Active Substance: CARBIDOPA\LEVODOPA

REACTIONS (1)
  - Vitreous opacities [Unknown]

NARRATIVE: CASE EVENT DATE: 20240424
